FAERS Safety Report 6238973-7 (Version None)
Quarter: 2009Q2

REPORT INFORMATION
  Report Type: 
  Country: None (occurrence: None)
  Receive Date: 20090622
  Receipt Date: 20090615
  Transmission Date: 20091009
  Serious: Yes (Hospitalization, Congenital Anomaly)
  Sender: FDA-Public Use
  Company Number: A0754647A

PATIENT
  Sex: Male
  Weight: 2 kg

DRUGS (11)
  1. PAXIL [Suspect]
     Indication: DRUG USE FOR UNKNOWN INDICATION
  2. AMBIEN [Concomitant]
  3. VITAMIN TAB [Concomitant]
  4. ZOLOFT [Concomitant]
  5. PROCARDIA [Concomitant]
  6. VALTREX [Concomitant]
  7. FOLIC ACID [Concomitant]
  8. NIFEDIPINE [Concomitant]
  9. HYDRALAZINE HCL [Concomitant]
  10. STEROID [Concomitant]
     Dates: start: 20041125, end: 20041126
  11. MAGNESIUM SULFATE [Concomitant]

REACTIONS (7)
  - ATRIAL SEPTAL DEFECT [None]
  - CONGENITAL TRICUSPID VALVE ATRESIA [None]
  - DRUG EXPOSURE DURING PREGNANCY [None]
  - KAWASAKI'S DISEASE [None]
  - PATENT DUCTUS ARTERIOSUS [None]
  - TRANSPOSITION OF THE GREAT VESSELS [None]
  - VENTRICULAR SEPTAL DEFECT [None]
